FAERS Safety Report 6631565-7 (Version None)
Quarter: 2010Q1

REPORT INFORMATION
  Report Type: 
  Country: None (occurrence: None)
  Receive Date: 20100312
  Receipt Date: 20100308
  Transmission Date: 20100710
  Serious: Yes (Death, Other)
  Sender: FDA-Public Use
  Company Number: PHEH2008US06600

PATIENT
  Sex: Female

DRUGS (13)
  1. ZOMETA [Suspect]
     Indication: METASTASES TO BONE
     Dosage: 4 MG, QW3
     Route: 042
  2. CHEMOTHERAPEUTICS NOS [Suspect]
     Dosage: EVERY THREE WEEKS
  3. HERCEPTIN [Concomitant]
     Dosage: UNK
     Dates: start: 20060101, end: 20060501
  4. NAVELBINE [Concomitant]
     Dosage: 60 MG, UNK
     Dates: start: 20060501
  5. TAXOL [Concomitant]
     Dosage: UNK
     Dates: start: 20060101
  6. OXYCONTIN [Concomitant]
     Dosage: 40 MG, BID
  7. XELODA [Concomitant]
  8. DECADRON [Concomitant]
  9. ARANESP [Concomitant]
     Indication: ANAEMIA
     Dosage: 300 MG, UNK
  10. OXYCODONE [Concomitant]
  11. HYDROCODONE [Concomitant]
  12. VALTREX [Concomitant]
  13. COMPAZINE [Concomitant]

REACTIONS (35)
  - ANAEMIA [None]
  - ANXIETY [None]
  - ATRIAL FIBRILLATION [None]
  - BONE DISORDER [None]
  - BONE PAIN [None]
  - CARDIOMYOPATHY [None]
  - CELLULITIS [None]
  - DECREASED INTEREST [None]
  - DEPRESSION [None]
  - DYSPNOEA [None]
  - ELECTROCARDIOGRAM ABNORMAL [None]
  - ERYTHEMA [None]
  - FISTULA DISCHARGE [None]
  - GINGIVAL EROSION [None]
  - GINGIVAL INFECTION [None]
  - HEPATIC NEOPLASM MALIGNANT [None]
  - HIATUS HERNIA [None]
  - INJURY [None]
  - LUNG DISORDER [None]
  - MALIGNANT NEOPLASM PROGRESSION [None]
  - MASTECTOMY [None]
  - METASTASES TO LIVER [None]
  - METASTASES TO LYMPH NODES [None]
  - NEOPLASM [None]
  - NEUROPATHY PERIPHERAL [None]
  - NEUTROPENIA [None]
  - OEDEMA [None]
  - ORAL DISORDER [None]
  - OSTEOMYELITIS [None]
  - OSTEONECROSIS [None]
  - OSTEOPENIA [None]
  - PAIN [None]
  - PERIODONTAL DISEASE [None]
  - PYREXIA [None]
  - TOOTH EXTRACTION [None]
